FAERS Safety Report 25311301 (Version 2)
Quarter: 2025Q3

REPORT INFORMATION
  Report Type: Spontaneous
  Country: US (occurrence: None)
  Receive Date: 20250514
  Receipt Date: 20250704
  Transmission Date: 20251020
  Serious: Yes (Other)
  Sender: Alvotech
  Company Number: None

PATIENT
  Sex: Male

DRUGS (1)
  1. ADALIMUMAB [Suspect]
     Active Substance: ADALIMUMAB
     Indication: Product used for unknown indication
     Route: 058
     Dates: start: 20250103, end: 20250217

REACTIONS (8)
  - Dizziness [Unknown]
  - Injection site pain [Unknown]
  - Musculoskeletal chest pain [Unknown]
  - Dyspepsia [Unknown]
  - Condition aggravated [Unknown]
  - Sinusitis [Unknown]
  - Nausea [Unknown]
  - Drug ineffective [Unknown]
